FAERS Safety Report 4831788-3 (Version None)
Quarter: 2005Q4

REPORT INFORMATION
  Report Type: 
  Country: None (occurrence: None)
  Receive Date: 20051118
  Receipt Date: 20050930
  Transmission Date: 20060501
  Serious: Yes (Other)
  Sender: FDA-Public Use
  Company Number: US-MERCK-0510USA01927

PATIENT
  Age: 56 Year
  Sex: Male
  Weight: 114 kg

DRUGS (11)
  1. VIOXX [Suspect]
     Indication: ARTHRITIS
     Route: 048
     Dates: start: 20000201, end: 20040708
  2. ACETAMINOPHEN [Concomitant]
     Route: 065
  3. ADVAIR DISKUS 100/50 [Concomitant]
     Route: 065
  4. ALBUTEROL [Concomitant]
     Route: 065
  5. DOXYCYCLINE [Concomitant]
     Route: 065
  6. LAMISIL [Concomitant]
     Route: 065
  7. LOTENSIN [Concomitant]
     Route: 065
  8. VIAGRA [Concomitant]
     Route: 065
  9. VOLMAX [Concomitant]
     Route: 065
  10. VOSPIRE [Concomitant]
     Route: 065
  11. ZOCOR [Concomitant]
     Route: 048

REACTIONS (1)
  - MYOCARDIAL INFARCTION [None]
